FAERS Safety Report 25713433 (Version 5)
Quarter: 2025Q4

REPORT INFORMATION
  Report Type: Report from Study
  Country: EU (occurrence: EU)
  Receive Date: 20250822
  Receipt Date: 20251104
  Transmission Date: 20260117
  Serious: Yes (Hospitalization)
  Sender: VELOXIS PHARMACEUTICALS
  Company Number: EU-CHIESI-2025CHF05697

PATIENT
  Age: 34 Year
  Sex: Male
  Weight: 70 kg

DRUGS (8)
  1. ENVARSUS XR [Suspect]
     Active Substance: TACROLIMUS
     Indication: Immunosuppressant drug therapy
     Dosage: 8 MILLIGRAM, QD
  2. ENVARSUS XR [Suspect]
     Active Substance: TACROLIMUS
     Dosage: 6 MILLIGRAM, QD
  3. MYCOPHENOLATE MOFETIL [Concomitant]
     Active Substance: MYCOPHENOLATE MOFETIL
     Indication: Kidney transplant rejection
     Dosage: 2000 MILLIGRAM, QD
  4. COTRIMOXAZOLE [Concomitant]
     Active Substance: SULFAMETHOXAZOLE\TRIMETHOPRIM
     Indication: Prophylaxis
     Dosage: 400 MILLIGRAM, QD
  5. VALGANCICLOVIR [Concomitant]
     Active Substance: VALGANCICLOVIR
     Indication: Prophylaxis
     Dosage: 450 MILLIGRAM, QD
  6. CELLCEPT [Concomitant]
     Active Substance: MYCOPHENOLATE MOFETIL
     Indication: Product used for unknown indication
     Dosage: 1000 MILLIGRAM
  7. COTRIMOXAZOLE [Concomitant]
     Active Substance: SULFAMETHOXAZOLE\TRIMETHOPRIM
     Indication: Product used for unknown indication
     Dosage: 800+160 MG IN THE MORNING ON MONDAYS, WEDNESDAYS, AND FRIDAYS
  8. PANTOPRAZOLE [PANTOPRAZOLE SODIUM] [Concomitant]
     Indication: Product used for unknown indication
     Dosage: AT 20 MG IN THE EVENING FOR ONE MONTH THEN STOP

REACTIONS (5)
  - Drug level increased [Recovered/Resolved]
  - Abdominal distension [Recovered/Resolved]
  - Hyperkalaemia [Recovered/Resolved]
  - Abdominal pain [Recovered/Resolved]
  - Haematuria [Recovered/Resolved]

NARRATIVE: CASE EVENT DATE: 20250809
